FAERS Safety Report 4699449-1 (Version None)
Quarter: 2005Q2

REPORT INFORMATION
  Report Type: 
  Country: None (occurrence: None)
  Receive Date: 20050624
  Receipt Date: 20050615
  Transmission Date: 20051028
  Serious: Yes (Other)
  Sender: FDA-Public Use
  Company Number: JP-MERCK-0506USA02836

PATIENT
  Age: 5 Year
  Sex: Male

DRUGS (3)
  1. COSMEGEN [Suspect]
     Indication: AESTHESIONEUROBLASTOMA
     Route: 042
     Dates: start: 20041001
  2. ENDOXAN [Suspect]
     Indication: AESTHESIONEUROBLASTOMA
     Route: 042
     Dates: start: 20041001
  3. ONCOVIN [Suspect]
     Indication: AESTHESIONEUROBLASTOMA
     Route: 042
     Dates: start: 20041001

REACTIONS (3)
  - CONVULSION [None]
  - INAPPROPRIATE ANTIDIURETIC HORMONE SECRETION [None]
  - RHABDOMYOSARCOMA [None]
